FAERS Safety Report 8964116 (Version 1)
Quarter: 2012Q4

REPORT INFORMATION
  Report Type: 
  Country: CA (occurrence: CA)
  Receive Date: 20121213
  Receipt Date: 20121213
  Transmission Date: 20130627
  Serious: Yes (Hospitalization, Other)
  Sender: FDA-Public Use
  Company Number: CA-B.I. PHARMACEUTICALS,INC./RIDGEFIELD-2012-CN-02530CN

PATIENT
  Sex: Female

DRUGS (1)
  1. PRADAX [Suspect]
     Indication: ATRIAL FIBRILLATION
     Dosage: 220 mg

REACTIONS (2)
  - Acute myocardial infarction [Unknown]
  - Cerebral haemorrhage [Unknown]
